FAERS Safety Report 15724683 (Version 2)
Quarter: 2018Q4

REPORT INFORMATION
  Report Type: Spontaneous
  Country: US (occurrence: US)
  Receive Date: 20181214
  Receipt Date: 20181231
  Transmission Date: 20190205
  Serious: Yes (Hospitalization)
  Sender: FDA-Public Use
  Company Number: US-NOVOPROD-636947

PATIENT
  Age: 65 Year
  Sex: Female
  Weight: 89.8 kg

DRUGS (2)
  1. OZEMPIC [Suspect]
     Active Substance: SEMAGLUTIDE
     Indication: TYPE 2 DIABETES MELLITUS
     Dosage: 0.25 MG, ONCE A WEEK
     Route: 058
     Dates: start: 201809, end: 2018
  2. OZEMPIC [Suspect]
     Active Substance: SEMAGLUTIDE
     Dosage: 0.5 MG, ONCE A WEEK
     Route: 058
     Dates: start: 2018, end: 20181108

REACTIONS (4)
  - Asthenia [Recovered/Resolved]
  - Myocardial infarction [Recovered/Resolved]
  - Dehydration [Recovered/Resolved]
  - Vomiting [Recovered/Resolved]

NARRATIVE: CASE EVENT DATE: 20181011
